FAERS Safety Report 9375238 (Version 2)
Quarter: 2013Q3

REPORT INFORMATION
  Report Type: Spontaneous
  Country: FR (occurrence: FR)
  Receive Date: 20130628
  Receipt Date: 20130704
  Transmission Date: 20140515
  Serious: Yes (Death)
  Sender: FDA-Public Use
  Company Number: FR-PFIZER INC-2013190760

PATIENT
  Age: 69 Year
  Sex: Male

DRUGS (12)
  1. ALDACTONE [Suspect]
     Indication: ASCITES
     Dosage: 25 MG, 1X/DAY
     Route: 048
     Dates: start: 20130507, end: 20130518
  2. EUPANTOL [Suspect]
     Dosage: 40 MG DAILY
     Route: 042
     Dates: start: 20130516, end: 20130606
  3. SEROPLEX [Suspect]
     Indication: DEPRESSION
     Dosage: 10 MG, UNK
     Route: 048
     Dates: start: 20130514, end: 20130528
  4. VIREAD [Suspect]
     Indication: HEPATITIS B
     Dosage: 245 MG, DAILY
     Route: 048
     Dates: start: 20130508, end: 20130528
  5. NOROXIN [Suspect]
     Indication: PERITONITIS
     Dosage: 400 MG, DAILY
     Route: 048
     Dates: start: 20130507, end: 20130509
  6. CEFTRIAXONE [Suspect]
     Dosage: UNK
     Route: 042
     Dates: start: 20130516, end: 20130606
  7. AVLOCARDYL [Concomitant]
     Indication: HEPATITIS B
     Dosage: 40 MG, 2X/DAY
     Route: 048
     Dates: start: 20130506, end: 20130606
  8. THIAMINE HYDROCHLORIDE [Concomitant]
     Indication: VITAMIN SUPPLEMENTATION
     Dosage: 60 MG, UNK
     Route: 048
     Dates: start: 20130425, end: 20130606
  9. PYRIDOXINE HYDROCHLORIDE [Concomitant]
     Indication: VITAMIN SUPPLEMENTATION
     Dosage: 500 MG, UNK
     Route: 048
     Dates: start: 20130425, end: 20130606
  10. PHOSPHONEUROS [Concomitant]
     Indication: MALNUTRITION
     Dosage: 50 GTT, 3X/DAY
     Route: 048
     Dates: start: 20130425, end: 20130606
  11. LOVENOX [Concomitant]
     Indication: THROMBOSIS PROPHYLAXIS
     Dosage: 4000 IU, UNK
     Route: 058
     Dates: start: 20130425, end: 20130606
  12. MAG 2 [Concomitant]
     Dosage: 2 DF, 2X/DAY
     Route: 048
     Dates: start: 20130425, end: 20130606

REACTIONS (1)
  - Prothrombin time ratio decreased [Fatal]
